FAERS Safety Report 8977431 (Version 2)
Quarter: 2012Q4

REPORT INFORMATION
  Report Type: 
  Country: US (occurrence: US)
  Receive Date: 20121220
  Receipt Date: 20121226
  Transmission Date: 20130627
  Serious: Yes (Hospitalization)
  Sender: FDA-Public Use
  Company Number: US-ASTRAZENECA-2002UW02651

PATIENT
  Age: 81 Year
  Sex: Female
  Weight: 79.4 kg

DRUGS (5)
  1. NEXIUM [Suspect]
     Indication: GASTROOESOPHAGEAL REFLUX DISEASE
     Route: 048
     Dates: start: 200112
  2. CRESTOR [Suspect]
     Route: 048
  3. DIAZIN [Concomitant]
  4. PREMARIN [Concomitant]
  5. VITAMINS [Concomitant]

REACTIONS (4)
  - Malaise [Recovered/Resolved]
  - Tachycardia [Unknown]
  - Cardiac fibrillation [Unknown]
  - Malaise [Unknown]
